FAERS Safety Report 6130981-X (Version None)
Quarter: 2009Q1

REPORT INFORMATION
  Report Type: 
  Country: None (occurrence: None)
  Receive Date: 20090323
  Receipt Date: 20090312
  Transmission Date: 20090719
  Serious: Yes (Hospitalization)
  Sender: FDA-Public Use
  Company Number: 188022ISR

PATIENT
  Age: 75 Year
  Sex: Female

DRUGS (2)
  1. BISOPROLOL FUMARATE AND HYDROCHLOROTHIAZIDE [Suspect]
     Indication: HYPERTENSION
     Dosage: BISOPROLOL 5 MG AND HCT 12.5 MG ORAL
     Route: 048
     Dates: end: 20081201
  2. CITALOPRAM HYDROBROMIDE [Suspect]
     Indication: NORMAL PRESSURE HYDROCEPHALUS
     Dosage: (20 MG) ORAL
     Route: 048
     Dates: end: 20081201

REACTIONS (6)
  - BEDRIDDEN [None]
  - DIARRHOEA [None]
  - GENERAL PHYSICAL HEALTH DETERIORATION [None]
  - HYPOKALAEMIA [None]
  - HYPONATRAEMIA [None]
  - MENTAL IMPAIRMENT [None]
